FAERS Safety Report 16379759 (Version 1)
Quarter: 2019Q2

REPORT INFORMATION
  Report Type: Spontaneous
  Country: IN (occurrence: IN)
  Receive Date: 20190531
  Receipt Date: 20190531
  Transmission Date: 20190711
  Serious: Yes (Other)
  Sender: FDA-Public Use
  Company Number: IN-TEVA-2019-IN-1058345

PATIENT
  Age: 42 Year
  Sex: Female

DRUGS (2)
  1. ACITRETIN. [Suspect]
     Active Substance: ACITRETIN
     Indication: PSORIASIS
     Route: 048
  2. PREDNISOLONE. [Concomitant]
     Active Substance: PREDNISOLONE
     Dosage: 10 MILLIGRAM DAILY;
     Route: 065

REACTIONS (4)
  - Respiratory alkalosis [Unknown]
  - Metabolic acidosis [Unknown]
  - Differentiation syndrome [Recovered/Resolved]
  - Leukocytosis [Unknown]
